FAERS Safety Report 8366278-7 (Version None)
Quarter: 2012Q2

REPORT INFORMATION
  Report Type: 
  Country: None (occurrence: None)
  Receive Date: 20120517
  Receipt Date: 20120511
  Transmission Date: 20120825
  Serious: Yes (Other)
  Sender: FDA-Public Use
  Company Number: PHHY2012MX040795

PATIENT
  Sex: Female

DRUGS (2)
  1. CLONAZEPAM [Concomitant]
     Dosage: 0.5 DF, PER DAY
     Dates: start: 20120401
  2. FORADIL [Suspect]
     Indication: ASTHMA
     Dosage: 1 DF, UNK
     Dates: start: 20120301, end: 20120401

REACTIONS (2)
  - ANXIETY DISORDER [None]
  - MAJOR DEPRESSION [None]
